FAERS Safety Report 10903897 (Version 1)
Quarter: 2015Q1

REPORT INFORMATION
  Report Type: Spontaneous
  Country: US (occurrence: US)
  Receive Date: 20150311
  Receipt Date: 20150311
  Transmission Date: 20150721
  Serious: Yes (Hospitalization)
  Sender: FDA-Public Use
  Company Number: US-AUROBINDO-AUR-APL-2015-02024

PATIENT
  Age: 68 Year
  Sex: Female

DRUGS (3)
  1. METFORMIN [Suspect]
     Active Substance: METFORMIN HYDROCHLORIDE
     Indication: HYPOGLYCAEMIA
     Dosage: UNK
     Route: 048
  2. GLYBURIDE. [Suspect]
     Active Substance: GLYBURIDE
     Indication: HYPOGLYCAEMIA
     Dosage: UNK
     Route: 048
  3. PIOGLITAZONE [Suspect]
     Active Substance: PIOGLITAZONE
     Indication: HYPOGLYCAEMIA
     Dosage: UNK
     Route: 048

REACTIONS (8)
  - Pollakiuria [Unknown]
  - Thirst [Unknown]
  - Blood glucose increased [Unknown]
  - Diabetes mellitus inadequate control [Unknown]
  - Diarrhoea [Unknown]
  - Abdominal pain [Unknown]
  - Treatment noncompliance [Unknown]
  - Glycosylated haemoglobin increased [Unknown]
